FAERS Safety Report 11809017 (Version 2)
Quarter: 2015Q4

REPORT INFORMATION
  Report Type: Spontaneous
  Country: RU (occurrence: RU)
  Receive Date: 20151207
  Receipt Date: 20151215
  Transmission Date: 20160305
  Serious: Yes (Other)
  Sender: FDA-Public Use
  Company Number: RU-SA-2015SA191817

PATIENT
  Age: 45 Year
  Sex: Female
  Weight: 68 kg

DRUGS (2)
  1. TRENTAL [Suspect]
     Active Substance: PENTOXIFYLLINE
     Indication: PROPHYLAXIS
     Dosage: STRENGTH: 100MG NS 60
     Route: 048
     Dates: start: 20151004, end: 20151103
  2. PHLEBODIA [Suspect]
     Active Substance: DIOSMIN
     Indication: PROPHYLAXIS
     Dosage: STRENGTH: 600MG
     Route: 048
     Dates: start: 20151004, end: 20151103

REACTIONS (4)
  - Cardiac discomfort [Recovered/Resolved]
  - Vasoconstriction [Recovered/Resolved]
  - Visual impairment [Recovered/Resolved]
  - Drug ineffective [Unknown]

NARRATIVE: CASE EVENT DATE: 201510
